FAERS Safety Report 13013021 (Version 1)
Quarter: 2016Q4

REPORT INFORMATION
  Report Type: Spontaneous
  Country: US (occurrence: US)
  Receive Date: 20161208
  Receipt Date: 20161208
  Transmission Date: 20170207
  Serious: Yes (Other)
  Sender: FDA-Public Use
  Company Number: None

PATIENT
  Age: 49 Year
  Sex: Female
  Weight: 94.5 kg

DRUGS (1)
  1. FERAHEME [Suspect]
     Active Substance: FERUMOXYTOL NON-STOICHIOMETRIC MAGNETITE
     Indication: PREOPERATIVE CARE
     Route: 058

REACTIONS (9)
  - Feeling hot [None]
  - Chest discomfort [None]
  - Muscle disorder [None]
  - Anaphylactic reaction [None]
  - Feeling abnormal [None]
  - Dizziness [None]
  - Dyspnoea [None]
  - Flushing [None]
  - Lacrimation increased [None]

NARRATIVE: CASE EVENT DATE: 20161202
